FAERS Safety Report 10211304 (Version 1)
Quarter: 2014Q2

REPORT INFORMATION
  Report Type: Report from Study
  Country: US (occurrence: US)
  Receive Date: 20140602
  Receipt Date: 20140602
  Transmission Date: 20141212
  Serious: Yes (Other)
  Sender: FDA-Public Use
  Company Number: US-ABBVIE-14P-163-1240559-00

PATIENT
  Age: 49 Year
  Sex: Female
  Weight: 77.18 kg

DRUGS (11)
  1. HUMIRA [Suspect]
     Indication: PSORIASIS
     Dates: start: 201403, end: 20140429
  2. HUMIRA [Suspect]
     Indication: PSORIATIC ARTHROPATHY
  3. ELAVIL [Concomitant]
     Indication: MIGRAINE PROPHYLAXIS
  4. CRANBERRY [Concomitant]
     Indication: BLADDER DISORDER
  5. FOLIC ACID [Concomitant]
     Indication: ANAEMIA PROPHYLAXIS
  6. FLEXERIL [Concomitant]
     Indication: PRODUCT USED FOR UNKNOWN INDICATION
  7. PREVACID [Concomitant]
     Indication: GASTROOESOPHAGEAL REFLUX DISEASE
  8. NORCO [Concomitant]
     Indication: PAIN
  9. DILAUDID [Concomitant]
     Indication: PAIN
  10. DOCUSATE SODIUM [Concomitant]
     Indication: CONSTIPATION PROPHYLAXIS
  11. MULTIVITAMIN [Concomitant]
     Indication: VITAMIN SUPPLEMENTATION

REACTIONS (3)
  - Rotator cuff syndrome [Recovering/Resolving]
  - Cartilage injury [Recovering/Resolving]
  - Musculoskeletal pain [Recovering/Resolving]
